FAERS Safety Report 5794298-5 (Version None)
Quarter: 2008Q2

REPORT INFORMATION
  Report Type: 
  Country: None (occurrence: None)
  Receive Date: 20080625
  Receipt Date: 20080612
  Transmission Date: 20081010
  Serious: No
  Sender: FDA-Public Use
  Company Number: DSU-2008-00862

PATIENT
  Sex: Female

DRUGS (1)
  1. WELCHOL [Suspect]
     Indication: DRUG USE FOR UNKNOWN INDICATION
     Dosage: 3750 MG (1875 MG, BID), PER ORAL
     Route: 048

REACTIONS (1)
  - DYSPHAGIA [None]
